FAERS Safety Report 6097557-4 (Version None)
Quarter: 2009Q1

REPORT INFORMATION
  Report Type: 
  Country: None (occurrence: None)
  Receive Date: 20090227
  Receipt Date: 20081107
  Transmission Date: 20090719
  Serious: No
  Sender: FDA-Public Use
  Company Number: A0755426A

PATIENT
  Age: 50 Year
  Sex: Male

DRUGS (5)
  1. IMITREX [Suspect]
     Indication: MIGRAINE
     Dosage: 22UNIT AS REQUIRED
     Route: 058
  2. IMITREX [Suspect]
     Route: 048
  3. IMITREX [Suspect]
     Route: 045
  4. SYNTHROID [Concomitant]
  5. ATENOLOL [Concomitant]

REACTIONS (5)
  - DRUG INEFFECTIVE [None]
  - FEELING ABNORMAL [None]
  - FEELING HOT [None]
  - FLUSHING [None]
  - POSTNASAL DRIP [None]
